FAERS Safety Report 17765789 (Version 1)
Quarter: 2020Q2

REPORT INFORMATION
  Report Type: Spontaneous
  Country: US (occurrence: US)
  Receive Date: 20200508
  Receipt Date: 20200508
  Transmission Date: 20200714
  Serious: Yes (Life-Threatening)
  Sender: FDA-Public Use
  Company Number: None

PATIENT
  Age: 35 Year
  Sex: Male
  Weight: 56.25 kg

DRUGS (1)
  1. ARIPIPRAZOLE (ARIPIPRAZOLE 5MG TAB) [Suspect]
     Active Substance: ARIPIPRAZOLE
     Route: 048
     Dates: start: 20200129, end: 20200201

REACTIONS (1)
  - Suicidal ideation [None]

NARRATIVE: CASE EVENT DATE: 20200201
